FAERS Safety Report 10178047 (Version 2)
Quarter: 2014Q2

REPORT INFORMATION
  Report Type: Report from Study
  Country: US (occurrence: US)
  Receive Date: 20140518
  Receipt Date: 20140526
  Transmission Date: 20141212
  Serious: Yes (Other)
  Sender: FDA-Public Use
  Company Number: PHEH2014US009902

PATIENT
  Age: 66 Year
  Sex: Male

DRUGS (1)
  1. EXFORGE [Suspect]
     Dosage: UNK UKN, (10 AS REPORTED)
     Dates: start: 2013

REACTIONS (2)
  - Cerebrovascular accident [Unknown]
  - Blood pressure increased [Unknown]
